FAERS Safety Report 14037828 (Version 2)
Quarter: 2017Q4

REPORT INFORMATION
  Report Type: Spontaneous
  Country: FR (occurrence: FR)
  Receive Date: 20171004
  Receipt Date: 20171028
  Transmission Date: 20180321
  Serious: Yes (Hospitalization, Other)
  Sender: FDA-Public Use
  Company Number: FR-ROCHE-2000060

PATIENT
  Age: 33 Year
  Sex: Female

DRUGS (6)
  1. FOSCAVIR [Suspect]
     Active Substance: FOSCARNET SODIUM
     Indication: CYTOMEGALOVIRUS INFECTION
     Dosage: 45MG/KG/12H
     Route: 065
     Dates: start: 20170902
  2. ROVALCYTE [Suspect]
     Active Substance: VALGANCICLOVIR HYDROCHLORIDE
     Dosage: DOSE INCREASED TO TO 900 MG X2
     Route: 048
     Dates: start: 20170803, end: 20170902
  3. PREDNISONE. [Concomitant]
     Active Substance: PREDNISONE
     Route: 065
  4. IMUREL [Concomitant]
     Active Substance: AZATHIOPRINE SODIUM
     Route: 065
  5. ADOPORT [Concomitant]
     Active Substance: TACROLIMUS
     Route: 065
  6. ROVALCYTE [Suspect]
     Active Substance: VALGANCICLOVIR HYDROCHLORIDE
     Indication: CYTOMEGALOVIRUS INFECTION
     Route: 048
     Dates: start: 20170426

REACTIONS (1)
  - Tongue injury [Not Recovered/Not Resolved]

NARRATIVE: CASE EVENT DATE: 20170905
